FAERS Safety Report 5978285-X (Version None)
Quarter: 2008Q4

REPORT INFORMATION
  Report Type: 
  Country: None (occurrence: None)
  Receive Date: 20081204
  Receipt Date: 20081204
  Transmission Date: 20090506
  Serious: Yes (Hospitalization)
  Sender: FDA-Public Use
  Company Number: FR-ABBOTT-08P-056-0487085-00

PATIENT
  Sex: Female

DRUGS (3)
  1. DEPAKOTE [Suspect]
     Indication: PSYCHOMOTOR HYPERACTIVITY
     Route: 048
     Dates: start: 20080728, end: 20080825
  2. LOXAPINE SUCCINATE [Suspect]
     Indication: MANIA
     Route: 048
     Dates: start: 20080825, end: 20080904
  3. LOXAPINE SUCCINATE [Suspect]
     Route: 030
     Dates: start: 20080823, end: 20080824

REACTIONS (7)
  - ASTHENIA [None]
  - BIPOLAR I DISORDER [None]
  - BLOOD BILIRUBIN INCREASED [None]
  - CHOLESTASIS [None]
  - CYTOLYTIC HEPATITIS [None]
  - HEPATOCELLULAR INJURY [None]
  - NAUSEA [None]
